FAERS Safety Report 15931913 (Version 2)
Quarter: 2019Q1

REPORT INFORMATION
  Report Type: Spontaneous
  Country: US (occurrence: US)
  Receive Date: 20190207
  Receipt Date: 20190213
  Transmission Date: 20190417
  Serious: Yes (Other)
  Sender: FDA-Public Use
  Company Number: US-ASTRAZENECA-2018SF26007

PATIENT
  Sex: Female
  Weight: 68.9 kg

DRUGS (10)
  1. PREDNISONE. [Concomitant]
     Active Substance: PREDNISONE
     Dosage: 5 MG
     Route: 048
  2. ATENOLOL. [Concomitant]
     Active Substance: ATENOLOL
     Dosage: 50 MG
     Route: 048
  3. NEXIUM [Suspect]
     Active Substance: ESOMEPRAZOLE MAGNESIUM
     Dosage: 40 MG
     Route: 048
     Dates: start: 20070712
  4. AMLODIPINE [Concomitant]
     Active Substance: AMLODIPINE BESYLATE
     Dosage: 5 MG
     Route: 048
  5. CELLCEPT [Concomitant]
     Active Substance: MYCOPHENOLATE MOFETIL\MYCOPHENOLATE MOFETIL HYDROCHLORIDE
     Dosage: 500 MG
     Route: 048
  6. NEXIUM [Suspect]
     Active Substance: ESOMEPRAZOLE MAGNESIUM
     Route: 048
     Dates: start: 200707, end: 201603
  7. VALTREX [Concomitant]
     Active Substance: VALACYCLOVIR HYDROCHLORIDE
     Dosage: 500 MG
     Route: 048
  8. OXYBUTYNIN. [Concomitant]
     Active Substance: OXYBUTYNIN CHLORIDE
     Dosage: 10 MG
     Route: 048
  9. AUGMENTIN XR [Concomitant]
     Active Substance: AMOXICILLIN\CLAVULANATE POTASSIUM
     Route: 048
  10. LEVAQUIN [Concomitant]
     Active Substance: LEVOFLOXACIN
     Dosage: 500 MG
     Route: 048

REACTIONS (2)
  - Renal failure [Unknown]
  - End stage renal disease [Unknown]
